FAERS Safety Report 22366760 (Version 1)
Quarter: 2023Q2

REPORT INFORMATION
  Report Type: Spontaneous
  Country: US (occurrence: None)
  Receive Date: 20230524
  Receipt Date: 20230524
  Transmission Date: 20230721
  Serious: Yes (Hospitalization)
  Sender: FDA-Public Use
  Company Number: None

PATIENT
  Sex: Male

DRUGS (20)
  1. LENALIDOMIDE [Suspect]
     Active Substance: LENALIDOMIDE
     Indication: Follicular lymphoma stage II
     Dosage: FREQUENCY : DAILY;?
     Route: 048
  2. REVLIMID [Concomitant]
  3. ALBUTEROL [Concomitant]
  4. AMITRIPTYLINE [Concomitant]
  5. CYCLOBENZAPRINE [Concomitant]
  6. DULOXETINE [Concomitant]
     Active Substance: DULOXETINE
  7. EPIPEN [Concomitant]
     Active Substance: EPINEPHRINE
  8. HYDROCODONE-ACETAMINOPHEN [Concomitant]
  9. LEVOTHYROXINE [Concomitant]
  10. LYRICA [Concomitant]
  11. MULTIVITAMIN [Concomitant]
  12. OXYGEN [Concomitant]
     Active Substance: OXYGEN
  13. PANTOPRAZOLE [Concomitant]
  14. TRELEGY ELLIPTA [Concomitant]
  15. ALLOPURINOL [Concomitant]
     Active Substance: ALLOPURINOL
  16. MELATONIN [Concomitant]
     Active Substance: MELATONIN
  17. VITAMIN D [Concomitant]
     Active Substance: VITAMIN D NOS
  18. TRAMADOL [Concomitant]
  19. IBUPROFEN [Concomitant]
  20. OXYBUTYNIN [Concomitant]
     Active Substance: OXYBUTYNIN

REACTIONS (1)
  - Thrombosis [None]
